FAERS Safety Report 8545772 (Version 3)
Quarter: 2013Q1

REPORT INFORMATION
  Report Type: Report from Study
  Country: US (occurrence: US)
  Receive Date: 20120503
  Receipt Date: 20130103
  Transmission Date: 20140127
  Serious: Yes (Hospitalization, Other)
  Sender: FDA-Public Use
  Company Number: US-TEVA-335173USA

PATIENT
  Age: 67 Year
  Sex: Female
  Weight: 84.5 kg

DRUGS (3)
  1. TREANDA [Suspect]
     Indication: LYMPHOMA
     Route: 042
     Dates: start: 20110712, end: 20110715
  2. BORTEZOMIB [Suspect]
     Indication: LYMPHOMA
     Route: 042
     Dates: start: 20110712, end: 20110715
  3. RITUXIMAB [Suspect]
     Indication: LYMPHOMA
     Route: 042
     Dates: start: 20110712, end: 20110712

REACTIONS (4)
  - Lipase increased [Recovered/Resolved]
  - Clostridium difficile infection [Unknown]
  - Cystitis [Unknown]
  - Small intestinal obstruction [Unknown]
